FAERS Safety Report 8231031-1 (Version None)
Quarter: 2012Q1

REPORT INFORMATION
  Report Type: 
  Country: None (occurrence: None)
  Receive Date: 20120320
  Receipt Date: 20120307
  Transmission Date: 20120608
  Serious: Yes (Death, Hospitalization, Disabling, Other)
  Sender: FDA-Public Use
  Company Number: 2012SP012827

PATIENT
  Age: 58 Year
  Sex: Male
  Weight: 58 kg

DRUGS (19)
  1. FLUCONAZOLE [Suspect]
     Indication: PRODUCT USED FOR UNKNOWN INDICATION
  2. COLCHICIN [Concomitant]
  3. EBASTINE [Concomitant]
  4. INDOMETHACIN [Concomitant]
  5. CINAL (ASCORBIC ACID/CALCIUM PANTOTHENATE) [Concomitant]
  6. SYMMETREL [Concomitant]
  7. MAGNESIUM OXIDE [Concomitant]
  8. MUCODYNE [Concomitant]
  9. SULFAMETHOXAZOLE AND TRIMETHOPRIM [Concomitant]
     Indication: ANTIFUNGAL PROPHYLAXIS
     Dates: start: 20050927, end: 20051110
  10. METHYCOBAL [Concomitant]
  11. CLARITHROMYCIN [Concomitant]
  12. TEMODAL [Suspect]
     Indication: ANAPLASTIC ASTROCYTOMA
     Dosage: PO; 150 MG/M2;QD;PO; 150 MG/M2;QD;PO
     Route: 048
     Dates: start: 20050913, end: 20051020
  13. TEMODAL [Suspect]
     Indication: ANAPLASTIC ASTROCYTOMA
     Dosage: PO; 150 MG/M2;QD;PO; 150 MG/M2;QD;PO
     Route: 048
     Dates: start: 20051201
  14. TEMODAL [Suspect]
     Indication: ANAPLASTIC ASTROCYTOMA
     Dosage: PO; 150 MG/M2;QD;PO; 150 MG/M2;QD;PO
     Route: 048
     Dates: start: 20060922, end: 20060926
  15. UNASYN (SULTAMICILLIN TOSILATE0 (SULTAMICILLIN TOSILATE) [Suspect]
     Indication: PRODUCT USED FOR UNKNOWN INDICATION
  16. NIZATIDINE [Concomitant]
  17. LANSOPRAZOLE [Concomitant]
  18. PRIMAXIN [Suspect]
     Indication: PRODUCT USED FOR UNKNOWN INDICATION
  19. INTERFERON [Concomitant]

REACTIONS (7)
  - PNEUMONIA [None]
  - GLIOBLASTOMA MULTIFORME [None]
  - WHITE BLOOD CELL COUNT DECREASED [None]
  - LIVER FUNCTION TEST ABNORMAL [None]
  - NEOPLASM PROGRESSION [None]
  - LYMPHOCYTE COUNT DECREASED [None]
  - CARDIAC FAILURE [None]
